FAERS Safety Report 9538354 (Version 1)
Quarter: 2013Q3

REPORT INFORMATION
  Report Type: Spontaneous
  Country: US (occurrence: US)
  Receive Date: 20130920
  Receipt Date: 20130920
  Transmission Date: 20140515
  Serious: Yes (Other)
  Sender: FDA-Public Use
  Company Number: US-BAYER-2013-113286

PATIENT
  Age: 39 Year
  Sex: Female

DRUGS (5)
  1. OCELLA [Suspect]
  2. YAZ [Suspect]
  3. YASMIN [Suspect]
     Indication: CONTRACEPTION
  4. FLULAVAL [Concomitant]
  5. VALTREX [Concomitant]

REACTIONS (1)
  - Thrombosis [None]
